FAERS Safety Report 13364527 (Version 2)
Quarter: 2017Q1

REPORT INFORMATION
  Report Type: Spontaneous
  Country: US (occurrence: US)
  Receive Date: 20170323
  Receipt Date: 20170327
  Transmission Date: 20170429
  Serious: Yes (Other)
  Sender: FDA-Public Use
  Company Number: US-CELGENEUS-USA-2017036843

PATIENT
  Age: 4 Year
  Sex: Female
  Weight: 17.42 kg

DRUGS (2)
  1. REVLIMID [Suspect]
     Active Substance: LENALIDOMIDE
     Indication: ACUTE MYELOID LEUKAEMIA
     Dosage: 35 MILLIGRAM (10 MG PLUS 25 MG)
     Route: 048
     Dates: start: 201703
  2. SULFAMETHOXAZOLE / TRIMETHOPRIM [Concomitant]
     Active Substance: SULFAMETHOXAZOLE\TRIMETHOPRIM
     Indication: PRODUCT USED FOR UNKNOWN INDICATION
     Route: 048

REACTIONS (5)
  - Headache [Unknown]
  - Nausea [Unknown]
  - Arthralgia [Unknown]
  - Petechiae [Unknown]
  - Back pain [Unknown]

NARRATIVE: CASE EVENT DATE: 201703
